FAERS Safety Report 5923646-8 (Version None)
Quarter: 2008Q4

REPORT INFORMATION
  Report Type: 
  Country: None (occurrence: None)
  Receive Date: 20081015
  Receipt Date: 20080930
  Transmission Date: 20090506
  Serious: Yes (Hospitalization, Other)
  Sender: FDA-Public Use
  Company Number: MEDI-0005987

PATIENT
  Age: 3 Month
  Sex: Male
  Weight: 3.8 kg

DRUGS (1)
  1. SYNAGIS [Suspect]
     Indication: ANTIVIRAL PROPHYLAXIS
     Dates: start: 20070214, end: 20070307

REACTIONS (3)
  - PULMONARY HYPERTENSION [None]
  - PULMONARY HYPOPLASIA [None]
  - RESPIRATORY SYNCYTIAL VIRUS INFECTION [None]
